FAERS Safety Report 7298378-7 (Version None)
Quarter: 2011Q1

REPORT INFORMATION
  Report Type: 
  Country: None (occurrence: None)
  Receive Date: 20110217
  Receipt Date: 20110209
  Transmission Date: 20110831
  Serious: Yes (Death)
  Sender: FDA-Public Use
  Company Number: GB-US-EMD SERONO, INC.-7042027

PATIENT
  Sex: Male
  Weight: 30 kg

DRUGS (2)
  1. SAIZEN [Suspect]
     Indication: GROWTH HORMONE DEFICIENCY
     Route: 058
     Dates: start: 20100311, end: 20110207
  2. PRO-CAL [Concomitant]
     Indication: MEDICAL DIET

REACTIONS (2)
  - TREATMENT NONCOMPLIANCE [None]
  - SUDDEN DEATH [None]
